FAERS Safety Report 17544489 (Version 1)
Quarter: 2020Q1

REPORT INFORMATION
  Report Type: Spontaneous
  Country: DE (occurrence: DE)
  Receive Date: 20200316
  Receipt Date: 20200316
  Transmission Date: 20200409
  Serious: Yes (Other)
  Sender: FDA-Public Use
  Company Number: DE-US-PROVELL PHARMACEUTICALS LLC-E2B_90075701

PATIENT
  Sex: Female

DRUGS (4)
  1. EUTHYROX [Suspect]
     Active Substance: LEVOTHYROXINE SODIUM
     Indication: POST PROCEDURAL HYPOTHYROIDISM
     Dosage: OLD FORMULATION
     Dates: start: 2006, end: 2019
  2. VITAMIN D                          /00107901/ [Concomitant]
     Active Substance: ERGOCALCIFEROL
     Indication: PRODUCT USED FOR UNKNOWN INDICATION
  3. EUTHYROX [Suspect]
     Active Substance: LEVOTHYROXINE SODIUM
     Dosage: (NEW FORMULATION)
     Dates: start: 201912
  4. MAGNESIUM                          /00123201/ [Concomitant]
     Active Substance: MAGNESIUM HYDROXIDE
     Indication: PRODUCT USED FOR UNKNOWN INDICATION

REACTIONS (15)
  - Restlessness [Unknown]
  - Swelling [Unknown]
  - Drug ineffective [Unknown]
  - Weight increased [Unknown]
  - Hyperthyroidism [Unknown]
  - Alopecia [Unknown]
  - Impaired quality of life [Unknown]
  - Tinnitus [Unknown]
  - Stress [Unknown]
  - Blood thyroid stimulating hormone increased [Unknown]
  - Hot flush [Unknown]
  - Hypothyroidism [Unknown]
  - Head discomfort [Unknown]
  - Headache [Unknown]
  - Insomnia [Unknown]

NARRATIVE: CASE EVENT DATE: 201912
